FAERS Safety Report 9330481 (Version 1)
Quarter: 2013Q2

REPORT INFORMATION
  Report Type: Report from Study
  Country: CA (occurrence: CA)
  Receive Date: 20130605
  Receipt Date: 20130605
  Transmission Date: 20140414
  Serious: Yes (Death, Other)
  Sender: FDA-Public Use
  Company Number: CA-ROCHE-1195082

PATIENT
  Age: 75 Year
  Sex: Male
  Weight: 86 kg

DRUGS (4)
  1. AVASTIN [Suspect]
     Indication: COLON CANCER METASTATIC
     Dosage: HAD 6 INFUSIONS
     Route: 042
     Dates: start: 2012, end: 20121016
  2. AVASTIN [Suspect]
     Route: 042
     Dates: start: 20120612
  3. HYDROCHLOROTHIAZIDE [Concomitant]
  4. TAMSULOSIN [Concomitant]

REACTIONS (2)
  - Death [Fatal]
  - Drug ineffective [Unknown]
